FAERS Safety Report 20171546 (Version 1)
Quarter: 2021Q4

REPORT INFORMATION
  Report Type: Spontaneous
  Country: FR (occurrence: FR)
  Receive Date: 20211210
  Receipt Date: 20211210
  Transmission Date: 20220303
  Serious: Yes (Other)
  Sender: FDA-Public Use
  Company Number: None

PATIENT
  Age: 54 Year
  Sex: Male

DRUGS (4)
  1. SILDENAFIL CITRATE [Suspect]
     Active Substance: SILDENAFIL CITRATE
     Dosage: EVERY 2-3 WEEKS
     Route: 048
  2. AMYL NITRITE [Suspect]
     Active Substance: AMYL NITRITE
     Dosage: EVERY 2-3 WEEKS
     Route: 055
  3. 3-METHYLMETHCATHINONE [Suspect]
     Active Substance: 3-METHYLMETHCATHINONE
     Dosage: 0.3 G / INJECTION OR 3G OVER 12 HOURS EVERY 2-3 WEEKS
     Route: 042
  4. ALCOHOL [Suspect]
     Active Substance: ALCOHOL
     Dosage: AT LEAST 5 IU / DAY
     Route: 048

REACTIONS (1)
  - Drug dependence [Not Recovered/Not Resolved]
